FAERS Safety Report 4698605-6 (Version None)
Quarter: 2005Q2

REPORT INFORMATION
  Report Type: 
  Country: None (occurrence: None)
  Receive Date: 20050623
  Receipt Date: 20040701
  Transmission Date: 20051028
  Serious: Yes (Other)
  Sender: FDA-Public Use
  Company Number: NUBN20040012

PATIENT
  Age: 25 Year
  Sex: Male

DRUGS (1)
  1. NALBUPHINE [Suspect]

REACTIONS (1)
  - DRUG ABUSER [None]
